FAERS Safety Report 9695406 (Version 1)
Quarter: 2013Q4

REPORT INFORMATION
  Report Type: Spontaneous
  Country: US (occurrence: US)
  Receive Date: 20131119
  Receipt Date: 20131119
  Transmission Date: 20140711
  Serious: No
  Sender: FDA-Public Use
  Company Number: US-BAYER-2013-133398

PATIENT
  Age: 56 Year
  Sex: Male

DRUGS (2)
  1. ALEVE LIQUID GELS [Suspect]
     Indication: BACK PAIN
     Dosage: 3 DF, QD
     Route: 048
     Dates: start: 201302
  2. ALEVE TABLET [Suspect]
     Indication: BACK PAIN
     Dosage: 3 DF, PRN
     Route: 048
     Dates: start: 201302

REACTIONS (4)
  - Hypoaesthesia [Not Recovered/Not Resolved]
  - Incorrect drug administration duration [None]
  - Inappropriate schedule of drug administration [None]
  - Off label use [None]
